FAERS Safety Report 23946864 (Version 3)
Quarter: 2024Q3

REPORT INFORMATION
  Report Type: Spontaneous
  Country: FR (occurrence: FR)
  Receive Date: 20240606
  Receipt Date: 20240816
  Transmission Date: 20241017
  Serious: Yes (Other)
  Sender: ROCHE
  Company Number: FR-ROCHE-3568744

PATIENT
  Age: 68 Year
  Sex: Female

DRUGS (3)
  1. VABYSMO [Suspect]
     Active Substance: FARICIMAB\FARICIMAB-SVOA
     Indication: Neovascular age-related macular degeneration
     Dosage: 2ND IVT : 30/JAN/2024, 3RD IVT : 27/FEB/2024 4TH AND LAST IVT : 26/MAR/2024?1ST IVT : B1511B01 2ND I
     Route: 050
     Dates: start: 20240102
  2. VABYSMO [Suspect]
     Active Substance: FARICIMAB\FARICIMAB-SVOA
     Route: 050
  3. VABYSMO [Suspect]
     Active Substance: FARICIMAB\FARICIMAB-SVOA
     Route: 050

REACTIONS (2)
  - Iridocyclitis [Recovered/Resolved]
  - Ocular hypertension [Not Recovered/Not Resolved]

NARRATIVE: CASE EVENT DATE: 20240420
